FAERS Safety Report 9929642 (Version 1)
Quarter: 2014Q1

REPORT INFORMATION
  Report Type: Spontaneous
  Country: US (occurrence: US)
  Receive Date: 20140227
  Receipt Date: 20140227
  Transmission Date: 20141002
  Serious: No
  Sender: FDA-Public Use
  Company Number: US-TEVA-465840USA

PATIENT
  Age: 19 Year
  Sex: Female
  Weight: 61.29 kg

DRUGS (5)
  1. PLAN B ONE-STEP [Suspect]
     Indication: POST COITAL CONTRACEPTION
     Dosage: 1.5 MILLIGRAM DAILY;
     Route: 048
     Dates: start: 20140215, end: 20140215
  2. RITALIN [Concomitant]
     Indication: ATTENTION DEFICIT/HYPERACTIVITY DISORDER
  3. MINOCYCLINE [Concomitant]
     Indication: ACNE
  4. MELATONIN [Concomitant]
     Indication: INSOMNIA
  5. BIRTH CONTROL PILLS [Concomitant]
     Indication: CONTRACEPTION

REACTIONS (2)
  - Nausea [Unknown]
  - Vomiting [Recovered/Resolved]
